FAERS Safety Report 18356305 (Version 1)
Quarter: 2020Q4

REPORT INFORMATION
  Report Type: Spontaneous
  Country: BE (occurrence: BE)
  Receive Date: 20201007
  Receipt Date: 20201007
  Transmission Date: 20210114
  Serious: Yes (Hospitalization)
  Sender: FDA-Public Use
  Company Number: BE-JNJFOC-20201002369

PATIENT
  Age: 4 Year
  Sex: Female
  Weight: 13 kg

DRUGS (5)
  1. REMICADE [Suspect]
     Active Substance: INFLIXIMAB
     Route: 042
     Dates: start: 20180131, end: 20180131
  2. REMICADE [Suspect]
     Active Substance: INFLIXIMAB
     Route: 042
     Dates: start: 201802, end: 2018
  3. REMICADE [Suspect]
     Active Substance: INFLIXIMAB
     Indication: INFLAMMATORY BOWEL DISEASE
     Route: 042
     Dates: start: 20171213, end: 20171213
  4. REMICADE [Suspect]
     Active Substance: INFLIXIMAB
     Route: 042
     Dates: start: 201804, end: 2018
  5. REMICADE [Suspect]
     Active Substance: INFLIXIMAB
     Route: 042
     Dates: start: 20171227, end: 20171227

REACTIONS (12)
  - Product use issue [Unknown]
  - Diarrhoea haemorrhagic [Recovered/Resolved]
  - Off label use [Unknown]
  - Cachexia [Recovered/Resolved]
  - Decreased appetite [Recovered/Resolved]
  - Metabolic acidosis [Recovered/Resolved]
  - Drug specific antibody [Unknown]
  - Vomiting [Recovered/Resolved]
  - Dermatitis [Recovered/Resolved]
  - Growth retardation [Recovered/Resolved]
  - Anaemia [Recovered/Resolved]
  - Drug hypersensitivity [Recovered/Resolved]

NARRATIVE: CASE EVENT DATE: 201802
